FAERS Safety Report 5956784-4 (Version None)
Quarter: 2008Q4

REPORT INFORMATION
  Report Type: 
  Country: None (occurrence: None)
  Receive Date: 20081031
  Receipt Date: 20080813
  Transmission Date: 20090506
  Serious: No
  Sender: FDA-Public Use
  Company Number: 2008PV036445

PATIENT
  Age: 35 Year
  Sex: Female

DRUGS (5)
  1. SYMLINPEN [Suspect]
     Indication: TYPE 1 DIABETES MELLITUS
     Dosage: 45 MCG;TID;SC
     Route: 058
     Dates: start: 20080801
  2. SYMLIN [Suspect]
     Indication: TYPE 1 DIABETES MELLITUS
     Dosage: 45 MCG;TID;SC 12 MCG;TID;SC 60 MCG;SC
     Route: 058
     Dates: start: 20070101, end: 20070101
  3. SYMLIN [Suspect]
     Indication: TYPE 1 DIABETES MELLITUS
     Dosage: 45 MCG;TID;SC 12 MCG;TID;SC 60 MCG;SC
     Route: 058
     Dates: start: 20080601, end: 20080601
  4. SYMLIN [Suspect]
     Indication: TYPE 1 DIABETES MELLITUS
     Dosage: 45 MCG;TID;SC 12 MCG;TID;SC 60 MCG;SC
     Route: 058
     Dates: start: 20080601, end: 20080630
  5. HUMALOG [Concomitant]

REACTIONS (1)
  - NAUSEA [None]
